FAERS Safety Report 26012678 (Version 1)
Quarter: 2025Q4

REPORT INFORMATION
  Report Type: Spontaneous
  Country: EU (occurrence: EU)
  Receive Date: 20251107
  Receipt Date: 20251107
  Transmission Date: 20260117
  Serious: Yes (Other)
  Sender: BRACCO
  Company Number: None

PATIENT
  Age: 65 Year
  Sex: Male

DRUGS (2)
  1. IOMERON [Suspect]
     Active Substance: IOMEPROL
     Dosage: 70 ML, SINGLE
     Route: 042
     Dates: start: 20250821, end: 20250821
  2. ENALAPRIL MALEATE [Concomitant]
     Active Substance: ENALAPRIL MALEATE
     Indication: Essential hypertension
     Dosage: 20 MG, QD
     Route: 048

REACTIONS (3)
  - Contrast media reaction [Recovered/Resolved]
  - Erythema [Recovered/Resolved]
  - Pruritus [Recovered/Resolved]

NARRATIVE: CASE EVENT DATE: 20250821
